FAERS Safety Report 5773177-3 (Version None)
Quarter: 2008Q2

REPORT INFORMATION
  Report Type: 
  Country: None (occurrence: None)
  Receive Date: 20080613
  Receipt Date: 20080613
  Transmission Date: 20081010
  Serious: Yes (Other)
  Sender: FDA-Public Use
  Company Number: None

PATIENT
  Age: 17 Year
  Sex: Male
  Weight: 89.8122 kg

DRUGS (4)
  1. PROPRANOLOL [Suspect]
     Indication: AGGRESSION
     Dosage: 80 MG BID PO
     Route: 048
     Dates: start: 20080101, end: 20080605
  2. PROPRANOLOL [Suspect]
     Indication: ANTICIPATORY ANXIETY
     Dosage: 80 MG BID PO
     Route: 048
     Dates: start: 20080101, end: 20080605
  3. PROPRANOLOL [Suspect]
     Indication: AGGRESSION
     Dosage: 80 MG BID PO
     Route: 048
     Dates: start: 20080101, end: 20080605
  4. PROPRANOLOL [Suspect]
     Indication: ANTICIPATORY ANXIETY
     Dosage: 80 MG BID PO
     Route: 048
     Dates: start: 20080101, end: 20080605

REACTIONS (5)
  - ABNORMAL BEHAVIOUR [None]
  - AGGRESSION [None]
  - AGITATION [None]
  - DISCOMFORT [None]
  - PHARMACEUTICAL PRODUCT COMPLAINT [None]
